FAERS Safety Report 10009398 (Version 2)
Quarter: 2014Q1

REPORT INFORMATION
  Report Type: Spontaneous
  Country: US (occurrence: US)
  Receive Date: 20140313
  Receipt Date: 20140313
  Transmission Date: 20141002
  Serious: No
  Sender: FDA-Public Use
  Company Number: US-INCYTE CORPORATION-2012IN001195

PATIENT
  Age: 66 Year
  Sex: Female

DRUGS (12)
  1. JAKAFI [Suspect]
     Indication: MYELOFIBROSIS
     Dosage: 15 MG, QD
     Route: 048
     Dates: start: 20120522
  2. PREDNISONE [Concomitant]
  3. XANAX [Concomitant]
  4. PAXIL [Concomitant]
  5. XYZAL [Concomitant]
  6. LASIX [Concomitant]
  7. AXID [Concomitant]
  8. FOLIC ACID [Concomitant]
  9. GREEN TEA EXTRACT [Concomitant]
  10. VITAMIN B6 [Concomitant]
  11. PROBIOTICS [Concomitant]
  12. ASA [Concomitant]

REACTIONS (3)
  - Increased appetite [Not Recovered/Not Resolved]
  - Haemorrhage [Not Recovered/Not Resolved]
  - Weight increased [Not Recovered/Not Resolved]
